FAERS Safety Report 7995041-1 (Version None)
Quarter: 2011Q4

REPORT INFORMATION
  Report Type: 
  Country: None (occurrence: None)
  Receive Date: 20111220
  Receipt Date: 20111215
  Transmission Date: 20120403
  Serious: Yes (Life-Threatening)
  Sender: FDA-Public Use
  Company Number: IT-PFIZER INC-2011296028

PATIENT
  Age: 76 Year
  Sex: Male

DRUGS (6)
  1. GENTAMICIN SULFATE [Suspect]
     Indication: ENDOCARDITIS
     Dosage: 240 MG, UNK
     Route: 042
     Dates: start: 20111007, end: 20111020
  2. PANTOPRAZOLE SODIUM [Suspect]
     Indication: PROPHYLAXIS AGAINST GASTROINTESTINAL ULCER
     Dosage: 20 MG, UNK
     Route: 048
     Dates: start: 20111101, end: 20111107
  3. ROCEPHIN [Suspect]
     Indication: ENDOCARDITIS
     Dosage: 6 G, UNK
     Route: 042
     Dates: start: 20111102, end: 20111104
  4. CUBICIN [Suspect]
     Indication: ENDOCARDITIS
     Dosage: UNK
     Dates: start: 20111102, end: 20111105
  5. RIFADIN [Suspect]
     Indication: ENDOCARDITIS
     Dosage: 600 MG, UNK
     Route: 048
     Dates: start: 20111008, end: 20111102
  6. VANCOMYCIN HCL [Suspect]
     Indication: ENDOCARDITIS
     Dosage: 2 G, UNK
     Route: 042
     Dates: start: 20111007, end: 20111102

REACTIONS (1)
  - DRUG RASH WITH EOSINOPHILIA AND SYSTEMIC SYMPTOMS [None]
